FAERS Safety Report 8016428-7 (Version None)
Quarter: 2011Q4

REPORT INFORMATION
  Report Type: 
  Country: None (occurrence: None)
  Receive Date: 20111230
  Receipt Date: 20111221
  Transmission Date: 20120403
  Serious: Yes (Hospitalization, Other)
  Sender: FDA-Public Use
  Company Number: US-ELI_LILLY_AND_COMPANY-US201112006751

PATIENT
  Age: 65 Year
  Sex: Male

DRUGS (2)
  1. CYMBALTA [Suspect]
     Indication: DEPRESSION
     Dosage: 60 MG, QD
     Dates: start: 20040101
  2. CYMBALTA [Suspect]
     Dosage: 60 MG, BID
     Dates: start: 20110611, end: 20111101

REACTIONS (8)
  - CONSCIOUSNESS FLUCTUATING [None]
  - HYPERTROPHIC CARDIOMYOPATHY [None]
  - PRESYNCOPE [None]
  - ASTHENIA [None]
  - DRUG INEFFECTIVE [None]
  - IRRITABLE BOWEL SYNDROME [None]
  - DYSPHEMIA [None]
  - ANXIETY [None]
